FAERS Safety Report 7344456-3 (Version None)
Quarter: 2011Q1

REPORT INFORMATION
  Report Type: 
  Country: None (occurrence: None)
  Receive Date: 20110310
  Receipt Date: 20110303
  Transmission Date: 20110831
  Serious: Yes (Hospitalization)
  Sender: FDA-Public Use
  Company Number: CA-ELI_LILLY_AND_COMPANY-CA201103001464

PATIENT
  Sex: Male
  Weight: 80 kg

DRUGS (12)
  1. LASIX [Concomitant]
     Indication: OEDEMA
  2. GEMCITABINE HYDROCHLORIDE [Suspect]
     Indication: PANCREATIC CARCINOMA
     Dosage: 638 MG/M2, 2/W
     Dates: start: 20100114, end: 20101221
  3. CALCIUM CARBONATE W/VITAMIN D NOS [Concomitant]
  4. PLAVIX [Concomitant]
     Dates: start: 20100305
  5. SIMVASTATIN [Concomitant]
  6. OTHER PHARMA COMPANY INV DRUG [Suspect]
     Dosage: 24 MG/KG, OTHER
     Dates: start: 20110118
  7. NITRO-DUR [Concomitant]
  8. SYMBICORT [Concomitant]
  9. ELTROXIN [Concomitant]
  10. IBUPROFEN [Concomitant]
  11. PANTOLOC                           /01263202/ [Concomitant]
  12. OTHER PHARMA COMPANY INV DRUG [Suspect]
     Indication: PANCREATIC CARCINOMA
     Dosage: 24 MG/KG, OTHER
     Dates: start: 20100114, end: 20101214

REACTIONS (3)
  - CARDIAC FAILURE [None]
  - THROMBOCYTOPENIA [None]
  - HAEMOPTYSIS [None]
